FAERS Safety Report 8769096 (Version 2)
Quarter: 2012Q4

REPORT INFORMATION
  Report Type: 
  Country: US (occurrence: US)
  Receive Date: 20120904
  Receipt Date: 20120911
  Transmission Date: 20130627
  Serious: Yes (Other)
  Sender: FDA-Public Use
  Company Number: US-ELI_LILLY_AND_COMPANY-US201208009528

PATIENT
  Age: 52 Year
  Sex: Male

DRUGS (2)
  1. CIALIS [Suspect]
     Indication: ERECTILE DYSFUNCTION
     Dosage: 20 mg, prn
     Dates: start: 2011
  2. VITAMINS [Concomitant]

REACTIONS (5)
  - Knee arthroplasty [Unknown]
  - Pain [Unknown]
  - Back pain [Recovered/Resolved]
  - Drug ineffective [Unknown]
  - Headache [Unknown]
